FAERS Safety Report 10203061 (Version 2)
Quarter: 2014Q2

REPORT INFORMATION
  Report Type: Spontaneous
  Country: FR (occurrence: FR)
  Receive Date: 20140529
  Receipt Date: 20140529
  Transmission Date: 20141212
  Serious: Yes (Life-Threatening, Hospitalization)
  Sender: FDA-Public Use
  Company Number: FR-ROCHE-744244

PATIENT
  Age: 79 Year
  Sex: Female

DRUGS (17)
  1. MABTHERA [Suspect]
     Indication: COLD TYPE HAEMOLYTIC ANAEMIA
     Route: 042
  2. MABTHERA [Suspect]
     Route: 042
  3. MABTHERA [Suspect]
     Dosage: TWO COURSES MONTHLY
     Route: 042
  4. MABTHERA [Suspect]
     Dosage: ONE COURSE MONTHLY
     Route: 042
  5. MABTHERA [Suspect]
     Route: 042
  6. MABTHERA [Suspect]
     Route: 042
  7. MABTHERA [Suspect]
     Route: 042
  8. MABTHERA [Suspect]
     Route: 042
  9. MABTHERA [Suspect]
     Route: 042
  10. MABTHERA [Suspect]
     Route: 042
  11. MABTHERA [Suspect]
     Route: 042
  12. MABTHERA [Suspect]
     Route: 042
  13. SPECIAFOLDINE [Concomitant]
  14. LANZOR [Concomitant]
  15. LEVOTHYROX [Concomitant]
     Dosage: STARTED AT THE AGE OF ABOUT 50 YEARS
     Route: 065
  16. STILNOX [Concomitant]
  17. PIASCLEDINE (FRANCE) [Concomitant]
     Indication: OSTEOARTHRITIS

REACTIONS (2)
  - Colon cancer [Not Recovered/Not Resolved]
  - Rectal cancer [Unknown]
